FAERS Safety Report 22188369 (Version 1)
Quarter: 2023Q2

REPORT INFORMATION
  Report Type: Spontaneous
  Country: ES (occurrence: ES)
  Receive Date: 20230408
  Receipt Date: 20230408
  Transmission Date: 20230722
  Serious: Yes (Hospitalization)
  Sender: FDA-Public Use
  Company Number: None

PATIENT
  Age: 82 Year
  Sex: Male

DRUGS (11)
  1. TRAMADOL [Suspect]
     Active Substance: TRAMADOL
     Indication: Spinal stenosis
     Dosage: 50.0 MG C/12 H, TRAMADOL (2389A)
     Route: 065
     Dates: start: 20210212, end: 20221018
  2. ACETAMINOPHEN [Concomitant]
     Active Substance: ACETAMINOPHEN
     Indication: Pain in extremity
     Dosage: 1.0 G DECOCE, PARACETAMOL KERN PHARMA 1 G TABLETS EFG, 40 TABLETS
     Dates: start: 20220419
  3. FUROSEMIDE [Concomitant]
     Active Substance: FUROSEMIDE
     Indication: Atrial fibrillation
     Dosage: 40.0 MG A-DE
     Dates: start: 20220917
  4. ALLOPURINOL [Concomitant]
     Active Substance: ALLOPURINOL
     Indication: Gout
     Dosage: 100.0 MG CE, ALLOPURINOL NORMON 100 MG TABLETS EFG, 100 TABLETS
     Dates: start: 20220916
  5. NITROGLYCERIN [Concomitant]
     Active Substance: NITROGLYCERIN
     Indication: Myocardial ischaemia
     Dosage: 5.0 MG C/24 H, STRENGTH :  5 MG/24 H ,  30 PATCHES
     Dates: start: 20220818
  6. PREGABALINA NORMON [Concomitant]
     Indication: Musculoskeletal chest pain
     Dosage: 25.0 MG DECE, PREGABALIN NORMON 25 MG HARD CAPSULES EFG, 56 CAPSULES (ALUMINUM BLISTER/PVC-PVDC 60)
     Dates: start: 20200810
  7. TRAZODONE HYDROCHLORIDE [Concomitant]
     Active Substance: TRAZODONE HYDROCHLORIDE
     Indication: Insomnia
     Dosage: 100.0 MG C/24 H NOC, TRAZODONE NORMON 100 MG TABLETS EFG, 60 TABLETS (ALUMINIUM/PVDC-PE BLISTER)
     Dates: start: 20200831
  8. PANTOPRAZOL NORMON [Concomitant]
     Indication: Dyspepsia
     Dosage: 20.0 MG DE,PANTOPRAZOL NORMON 20 MG GASTRORESISTANT TABLETS EFG, 56 TABLETS
     Route: 065
     Dates: start: 20141118
  9. XARELTO [Concomitant]
     Active Substance: RIVAROXABAN
     Indication: Atrial fibrillation
     Dosage: 20.0 MG DE, 28 TABLETS
     Dates: start: 20220820
  10. VALDOXAN [Concomitant]
     Active Substance: AGOMELATINE
     Indication: Adjustment disorder with depressed mood
     Dosage: 25.0 MG C/24 H NOC , 28 TABLETS
     Dates: start: 20180918
  11. DUTASTERIDE\TAMSULOSIN HYDROCHLORIDE [Concomitant]
     Active Substance: DUTASTERIDE\TAMSULOSIN HYDROCHLORIDE
     Indication: Benign prostatic hyperplasia
     Dosage: 1.0 CAPS DE, STRENGTH : 0.5 MG/0.4 MG, 30 CAPSULES
     Route: 065
     Dates: start: 20160809

REACTIONS (1)
  - Disorientation [Recovered/Resolved]

NARRATIVE: CASE EVENT DATE: 20221018
